FAERS Safety Report 7890636-8 (Version None)
Quarter: 2011Q4

REPORT INFORMATION
  Report Type: 
  Country: None (occurrence: None)
  Receive Date: 20111103
  Receipt Date: 20110722
  Transmission Date: 20120403
  Serious: Yes (Other)
  Sender: FDA-Public Use
  Company Number: US-AMGEN-USASP2011037474

PATIENT
  Sex: Female

DRUGS (1)
  1. ENBREL [Suspect]
     Indication: PSORIATIC ARTHROPATHY
     Dosage: 50 MG, QWK
     Dates: start: 20110315, end: 20110301

REACTIONS (5)
  - HYPERSENSITIVITY [None]
  - HEADACHE [None]
  - PYREXIA [None]
  - FATIGUE [None]
  - CHILLS [None]
